FAERS Safety Report 7676756-1 (Version None)
Quarter: 2011Q3

REPORT INFORMATION
  Report Type: 
  Country: None (occurrence: None)
  Receive Date: 20110811
  Receipt Date: 20110805
  Transmission Date: 20111222
  Serious: Yes (Hospitalization)
  Sender: FDA-Public Use
  Company Number: US-AMGEN-USASP2011040131

PATIENT
  Age: 54 Year
  Sex: Male

DRUGS (1)
  1. NPLATE [Suspect]
     Indication: IDIOPATHIC THROMBOCYTOPENIC PURPURA
     Dates: start: 20110510

REACTIONS (6)
  - MOBILITY DECREASED [None]
  - RESPIRATORY DISORDER [None]
  - GENERAL PHYSICAL CONDITION ABNORMAL [None]
  - RENAL TRANSPLANT [None]
  - LIVER TRANSPLANT [None]
  - INFECTION [None]
